FAERS Safety Report 16259805 (Version 2)
Quarter: 2019Q2

REPORT INFORMATION
  Report Type: Report from Study
  Country: US (occurrence: US)
  Receive Date: 20190501
  Receipt Date: 20190513
  Transmission Date: 20190711
  Serious: Yes (Death, Hospitalization, Other)
  Sender: FDA-Public Use
  Company Number: US-ASTELLAS-2019US002859

PATIENT
  Age: 85 Year
  Sex: Male

DRUGS (1)
  1. ENZALUTAMIDE [Suspect]
     Active Substance: ENZALUTAMIDE
     Indication: PROSTATE CANCER
     Route: 048
     Dates: start: 20170207, end: 20190222

REACTIONS (8)
  - Pneumonia [Unknown]
  - Gait inability [Unknown]
  - Product dose omission [Unknown]
  - Cardiac failure [Unknown]
  - Respiratory failure [Fatal]
  - Chronic obstructive pulmonary disease [Fatal]
  - Pneumonia [Unknown]
  - Agitation [Unknown]

NARRATIVE: CASE EVENT DATE: 20190115
